FAERS Safety Report 16173446 (Version 1)
Quarter: 2019Q2

REPORT INFORMATION
  Report Type: Other
  Country: US (occurrence: US)
  Receive Date: 20190409
  Receipt Date: 20190409
  Transmission Date: 20190711
  Serious: Yes (Life-Threatening, Hospitalization, Other)
  Sender: FDA-Public Use
  Company Number: US-PROVELL PHARMACEUTICALS-2065532

PATIENT
  Age: 50 Year
  Sex: Male

DRUGS (2)
  1. EUTHYROX [Suspect]
     Active Substance: LEVOTHYROXINE SODIUM
     Indication: PRODUCT USED FOR UNKNOWN INDICATION
  2. LIOTHYRONINE [Suspect]
     Active Substance: LIOTHYRONINE

REACTIONS (2)
  - Hyperthyroidism [Recovered/Resolved]
  - Intentional overdose [None]
